FAERS Safety Report 5474274-2 (Version None)
Quarter: 2007Q4

REPORT INFORMATION
  Report Type: 
  Country: None (occurrence: None)
  Receive Date: 20071002
  Receipt Date: 20070709
  Transmission Date: 20080405
  Serious: No
  Sender: FDA-Public Use
  Company Number: US-ASTRAZENECA-2007UW16111

PATIENT
  Age: 57 Year
  Sex: Female
  Weight: 87.5 kg

DRUGS (6)
  1. ARIMIDEX [Suspect]
     Route: 048
  2. LISINOPRIL [Concomitant]
     Route: 048
  3. TRIEMPTERINE [Concomitant]
  4. EFFEXOR [Concomitant]
  5. ARIDIA [Concomitant]
  6. FASLODEX [Concomitant]
     Route: 030

REACTIONS (2)
  - ARTHRITIS [None]
  - BREAST SWELLING [None]
